FAERS Safety Report 6586809-7 (Version None)
Quarter: 2010Q1

REPORT INFORMATION
  Report Type: 
  Country: None (occurrence: None)
  Receive Date: 20100217
  Receipt Date: 20090721
  Transmission Date: 20100710
  Serious: No
  Sender: FDA-Public Use
  Company Number: US-ALLERGAN-0910220US

PATIENT
  Sex: Female

DRUGS (2)
  1. BOTOX COSMETIC [Suspect]
     Indication: SKIN WRINKLING
     Dosage: UNK, SINGLE
     Route: 030
  2. BOTOX COSMETIC [Suspect]
     Dosage: UNK, SINGLE
     Route: 030

REACTIONS (4)
  - EYE IRRITATION [None]
  - EYELID PTOSIS [None]
  - FACIAL PARESIS [None]
  - SKIN TIGHTNESS [None]
